FAERS Safety Report 15634861 (Version 1)
Quarter: 2018Q4

REPORT INFORMATION
  Report Type: Spontaneous
  Country: US (occurrence: US)
  Receive Date: 20181119
  Receipt Date: 20181119
  Transmission Date: 20190205
  Serious: Yes (Death, Life-Threatening)
  Sender: FDA-Public Use
  Company Number: US-VIFOR (INTERNATIONAL) INC.-VIT-2018-11562

PATIENT
  Age: 55 Year
  Sex: Male
  Weight: 101.7 kg

DRUGS (2)
  1. MIRCERA [Suspect]
     Active Substance: METHOXY POLYETHYLENE GLYCOL-EPOETIN BETA
     Dosage: FOURTH DOSE (75MCG X3)
     Route: 040
     Dates: start: 20181108
  2. MIRCERA [Suspect]
     Active Substance: METHOXY POLYETHYLENE GLYCOL-EPOETIN BETA
     Indication: NEPHROGENIC ANAEMIA
     Dosage: FIRST DOSE (75MCG X3)
     Route: 040
     Dates: start: 20180927

REACTIONS (2)
  - Death [Fatal]
  - Unresponsive to stimuli [Unknown]

NARRATIVE: CASE EVENT DATE: 20181108
